FAERS Safety Report 7590813-X (Version None)
Quarter: 2011Q3

REPORT INFORMATION
  Report Type: 
  Country: None (occurrence: None)
  Receive Date: 20110705
  Receipt Date: 20110622
  Transmission Date: 20111222
  Serious: Yes (Hospitalization)
  Sender: FDA-Public Use
  Company Number: PHHY2011DE55919

PATIENT
  Age: 58 Year
  Sex: Female

DRUGS (5)
  1. PAMIDRONATE DISODIUM [Suspect]
     Dosage: UNK
     Dates: start: 20000401, end: 20090301
  2. CORTISONE ACETATE [Concomitant]
  3. PAMIDRONATE DISODIUM [Suspect]
     Dosage: UNK
     Route: 042
     Dates: start: 19970501, end: 20000401
  4. CHEMOTHERAPEUTICS [Concomitant]
     Indication: BREAST CANCER
  5. ZOLEDRONIC ACID [Suspect]
     Dosage: UNK
     Dates: start: 20090301, end: 20100601

REACTIONS (1)
  - OSTEONECROSIS OF JAW [None]
